FAERS Safety Report 14210133 (Version 1)
Quarter: 2017Q4

REPORT INFORMATION
  Report Type: Spontaneous
  Country: GR (occurrence: GR)
  Receive Date: 20171121
  Receipt Date: 20171121
  Transmission Date: 20180321
  Serious: Yes (Death, Other)
  Sender: FDA-Public Use
  Company Number: GR-CELGENEUS-GRC-2017036932

PATIENT

DRUGS (2)
  1. GEMCITABINE [Concomitant]
     Active Substance: GEMCITABINE\GEMCITABINE HYDROCHLORIDE
     Indication: PANCREATIC CARCINOMA METASTATIC
     Dosage: 107.1429 MILLIGRAM/SQ. METER
     Route: 065
     Dates: start: 201406, end: 201612
  2. ABRAXANE [Suspect]
     Active Substance: PACLITAXEL
     Indication: PANCREATIC CARCINOMA METASTATIC
     Dosage: 12.5 MILLIGRAM/SQ. METER
     Route: 041
     Dates: start: 201406, end: 201612

REACTIONS (7)
  - Fatigue [Unknown]
  - Haematotoxicity [Unknown]
  - Nausea [Unknown]
  - Death [Fatal]
  - General physical health deterioration [Unknown]
  - Neuropathy peripheral [Unknown]
  - Febrile neutropenia [Unknown]
